FAERS Safety Report 10504852 (Version 3)
Quarter: 2015Q3

REPORT INFORMATION
  Report Type: Spontaneous
  Country: US (occurrence: None)
  Receive Date: 20140929
  Receipt Date: 20150630
  Transmission Date: 20151125
  Serious: Yes (Hospitalization, Other)
  Sender: FDA-Public Use
  Company Number: US-2014-12100

PATIENT
  Age: 34 Year
  Sex: Female
  Weight: 49 kg

DRUGS (4)
  1. KLONOPIN [Concomitant]
     Active Substance: CLONAZEPAM
  2. EFFEXOR (VENLAFAXINE HYDROCHLORIDE) [Concomitant]
  3. ABILIFY MAINTENA [Suspect]
     Active Substance: ARIPIPRAZOLE
     Indication: BIPOLAR II DISORDER
     Dosage: 300 MG MILLIGRAM(S), GM, IM (DEPOT)
     Route: 030
     Dates: start: 20140731
  4. ARIPIPRAZOLE (ARIPIPRAZOLE) TABLET, 2MG [Suspect]
     Active Substance: ARIPIPRAZOLE
     Indication: BIPOLAR II DISORDER
     Route: 048
     Dates: start: 20140724, end: 20140916

REACTIONS (3)
  - Anxiety [None]
  - Suicidal ideation [None]
  - Product use issue [None]

NARRATIVE: CASE EVENT DATE: 201407
